FAERS Safety Report 5590978-5 (Version None)
Quarter: 2008Q1

REPORT INFORMATION
  Report Type: 
  Country: None (occurrence: None)
  Receive Date: 20080110
  Receipt Date: 20080107
  Transmission Date: 20080703
  Serious: Yes (Other)
  Sender: FDA-Public Use
  Company Number: 2008000485

PATIENT
  Age: 35 Year
  Sex: Male

DRUGS (4)
  1. SUDAFED S.A. [Suspect]
     Dosage: INHALATION
     Route: 055
     Dates: start: 20050501
  2. IODINE (IODINE) [Suspect]
     Dosage: INHALATION
     Route: 055
     Dates: start: 20050501
  3. SULFUR (SULFUR) [Suspect]
     Dosage: INHALATION
     Route: 055
     Dates: start: 20050501
  4. BUPRENORPHINE HYDROCHLORIDE [Concomitant]

REACTIONS (1)
  - INTENTIONAL DRUG MISUSE [None]
